FAERS Safety Report 9189963 (Version 1)
Quarter: 2013Q1

REPORT INFORMATION
  Report Type: Spontaneous
  Country: FR (occurrence: None)
  Receive Date: 20130322
  Receipt Date: 20130322
  Transmission Date: 20140127
  Serious: Yes (Disabling)
  Sender: FDA-Public Use
  Company Number: 1630964

PATIENT
  Age: 77 Year
  Sex: Female

DRUGS (4)
  1. (CARBOPLATIN) [Suspect]
     Indication: CHEMOTHERAPY
     Dosage: AUC 2
     Route: 042
     Dates: start: 20120919, end: 20121024
  2. TAXOL [Suspect]
     Indication: CHEMOTHERAPY
     Route: 042
     Dates: start: 20120919
  3. (OMEPRAZOLE) [Concomitant]
  4. (STILNOX) [Concomitant]

REACTIONS (3)
  - Deafness neurosensory [None]
  - Deafness bilateral [None]
  - Ototoxicity [None]
